FAERS Safety Report 8937032 (Version 2)
Quarter: 2012Q4

REPORT INFORMATION
  Report Type: 
  Country: CO (occurrence: CO)
  Receive Date: 20121130
  Receipt Date: 20121205
  Transmission Date: 20130627
  Serious: Yes (Disabling, Other)
  Sender: FDA-Public Use
  Company Number: PHHY2012CO108782

PATIENT
  Age: 9 Year
  Sex: Female

DRUGS (1)
  1. LEUPROLIDE [Suspect]
     Indication: PRECOCIOUS PUBERTY
     Dosage: UNK

REACTIONS (7)
  - Chest pain [Recovering/Resolving]
  - Myopathy [Recovering/Resolving]
  - Pain in extremity [Recovering/Resolving]
  - Back pain [Recovering/Resolving]
  - Insomnia [Recovering/Resolving]
  - Muscle spasms [Recovering/Resolving]
  - Headache [Recovering/Resolving]
